FAERS Safety Report 23723614 (Version 1)
Quarter: 2024Q2

REPORT INFORMATION
  Report Type: Spontaneous
  Country: US (occurrence: None)
  Receive Date: 20240409
  Receipt Date: 20240409
  Transmission Date: 20240716
  Serious: No
  Sender: FDA-Public Use
  Company Number: None

PATIENT
  Age: 61 Year
  Sex: Female
  Weight: 67.13 kg

DRUGS (1)
  1. EVENITY [Suspect]
     Active Substance: ROMOSOZUMAB-AQQG
     Indication: Osteoporosis
     Dosage: OTHER FREQUENCY : EVERY 30 DAYS;?
     Route: 030
     Dates: start: 20240312

REACTIONS (6)
  - Malaise [None]
  - Headache [None]
  - Nausea [None]
  - Vomiting [None]
  - Pain in jaw [None]
  - Bone pain [None]

NARRATIVE: CASE EVENT DATE: 20240312
